FAERS Safety Report 4273467-X (Version None)
Quarter: 2004Q1

REPORT INFORMATION
  Report Type: 
  Country: None (occurrence: None)
  Receive Date: 20040116
  Receipt Date: 20040116
  Transmission Date: 20041129
  Serious: Yes (Hospitalization)
  Sender: FDA-Public Use
  Company Number: None

PATIENT
  Age: 62 Year
  Sex: Female
  Weight: 204.1187 kg

DRUGS (6)
  1. TOPAMAX [Suspect]
     Indication: PETIT MAL EPILEPSY
     Dosage: 100 MG PO BID
     Route: 048
     Dates: start: 20030201
  2. TOPAMAX [Suspect]
     Indication: PETIT MAL EPILEPSY
     Dosage: 100 MG PO BID
     Route: 048
     Dates: start: 20040105
  3. GLUCOPHAGE [Concomitant]
  4. GLYBURIDE [Concomitant]
  5. MAXIZED [Concomitant]
  6. VICODIN [Concomitant]

REACTIONS (2)
  - ACIDOSIS HYPERCHLORAEMIC [None]
  - MENTAL STATUS CHANGES [None]
